FAERS Safety Report 11123471 (Version 1)
Quarter: 2015Q2

REPORT INFORMATION
  Report Type: Spontaneous
  Country: CN (occurrence: CN)
  Receive Date: 20150519
  Receipt Date: 20150519
  Transmission Date: 20150821
  Serious: Yes (Congenital Anomaly)
  Sender: FDA-Public Use
  Company Number: CN-ASTRAZENECA-2015SE44404

PATIENT

DRUGS (2)
  1. BYETTA [Suspect]
     Active Substance: EXENATIDE
     Indication: POLYCYSTIC OVARIES
     Route: 064
     Dates: start: 201411
  2. BYETTA [Suspect]
     Active Substance: EXENATIDE
     Indication: WEIGHT INCREASED
     Route: 064
     Dates: start: 201411

REACTIONS (1)
  - Heart disease congenital [Unknown]
